FAERS Safety Report 7820325-7 (Version None)
Quarter: 2011Q4

REPORT INFORMATION
  Report Type: 
  Country: None (occurrence: None)
  Receive Date: 20111018
  Receipt Date: 20111003
  Transmission Date: 20120403
  Serious: Yes (Hospitalization, Other)
  Sender: FDA-Public Use
  Company Number: JP-AMGEN-QUU437014

PATIENT
  Age: 10 Year
  Sex: Male
  Weight: 17 kg

DRUGS (6)
  1. PROGRAF [Concomitant]
     Indication: JUVENILE ARTHRITIS
     Dosage: .15 MG/KG, QWK
     Dates: start: 20071101, end: 20080717
  2. ENBREL [Suspect]
     Indication: JUVENILE ARTHRITIS
     Dosage: 12.5 MG, 2 TIMES/WK
     Route: 058
     Dates: start: 20080212, end: 20080304
  3. PREDNISOLONE [Concomitant]
     Indication: JUVENILE ARTHRITIS
     Dosage: 30 MG, QD
     Dates: start: 20000201, end: 20100507
  4. ENBREL [Suspect]
     Dosage: 18.75 MG, 2 TIMES/WK
     Route: 058
     Dates: start: 20080304, end: 20080502
  5. ENBREL [Suspect]
     Dosage: 25 MG, 2 TIMES/WK
     Route: 058
     Dates: start: 20080502, end: 20080619
  6. IBUPROFEN [Concomitant]
     Indication: JUVENILE ARTHRITIS
     Dosage: 40 MG/KG, QD
     Dates: start: 20020501, end: 20100921

REACTIONS (4)
  - HERPES ZOSTER [None]
  - ARTHRALGIA [None]
  - THERAPY REGIMEN CHANGED [None]
  - PYREXIA [None]
